FAERS Safety Report 15746123 (Version 5)
Quarter: 2020Q1

REPORT INFORMATION
  Report Type: Report from Study
  Country: CA (occurrence: CA)
  Receive Date: 20181220
  Receipt Date: 20200228
  Transmission Date: 20200409
  Serious: Yes (Other)
  Sender: FDA-Public Use
  Company Number: CA-JNJFOC-20181222321

PATIENT
  Age: 45 Year
  Sex: Male
  Weight: 109.2 kg

DRUGS (2)
  1. STELARA [Suspect]
     Active Substance: USTEKINUMAB
     Route: 058
  2. STELARA [Suspect]
     Active Substance: USTEKINUMAB
     Indication: CROHN^S DISEASE
     Dosage: STRENGTH = 520 MG
     Route: 058
     Dates: start: 20181026, end: 20181221

REACTIONS (8)
  - Abdominal pain [Not Recovered/Not Resolved]
  - Flatulence [Unknown]
  - Abdominal distension [Unknown]
  - Headache [Not Recovered/Not Resolved]
  - Anal fissure [Unknown]
  - Gastrointestinal sounds abnormal [Unknown]
  - Therapeutic response decreased [Unknown]
  - Anal abscess [Recovered/Resolved]

NARRATIVE: CASE EVENT DATE: 20181215
